FAERS Safety Report 8238507-1 (Version None)
Quarter: 2012Q1

REPORT INFORMATION
  Report Type: 
  Country: None (occurrence: None)
  Receive Date: 20120327
  Receipt Date: 20120308
  Transmission Date: 20120608
  Serious: Yes (Hospitalization)
  Sender: FDA-Public Use
  Company Number: SE-TEVA-327925USA

PATIENT
  Sex: Male
  Weight: 87 kg

DRUGS (12)
  1. WARFARIN SODIUM [Concomitant]
     Dates: start: 20000626
  2. TREANDA [Suspect]
     Route: 042
     Dates: start: 20110909
  3. ZOPICLONE [Concomitant]
     Dates: start: 20110101
  4. CANDESARTAN CILEXETIL [Concomitant]
     Dates: start: 20000831
  5. FESOTERODINE [Concomitant]
     Dates: start: 20091104
  6. FOLSYRA [Concomitant]
     Dates: start: 20120221
  7. BISOPROLOL FUMARATE [Concomitant]
     Dates: start: 20000831
  8. FUROSEMIDE [Concomitant]
     Dates: start: 20000831
  9. CIPROFLOXACIN [Concomitant]
     Dates: start: 20120220
  10. CITALOPRAM HYDROBROMIDE [Concomitant]
     Dates: start: 20041224
  11. RITUXIMAB [Suspect]
     Dosage: EVERY 4 WEEKS
     Route: 042
     Dates: start: 20110909
  12. FINASTERIDE [Concomitant]
     Dates: start: 20040101

REACTIONS (1)
  - POLYNEUROPATHY [None]
